FAERS Safety Report 12186156 (Version 22)
Quarter: 2021Q3

REPORT INFORMATION
  Report Type: Other
  Country: CA (occurrence: CA)
  Receive Date: 20160317
  Receipt Date: 20210726
  Transmission Date: 20211014
  Serious: Yes (Other)
  Sender: FDA-Public Use
  Company Number: CA-ROCHE-ITM201504IM013394

PATIENT
  Age: 58 Year
  Sex: Female
  Weight: 67.7 kg

DRUGS (37)
  1. ESBRIET [Suspect]
     Active Substance: PIRFENIDONE
     Route: 048
     Dates: start: 20150326, end: 2015
  2. NAPROXEN. [Concomitant]
     Active Substance: NAPROXEN
     Route: 065
  3. AMITRIPTYLINE [Concomitant]
     Active Substance: AMITRIPTYLINE
     Route: 065
  4. FERAMAX [Concomitant]
     Active Substance: IRON\POLYSACCHARIDES
  5. ESBRIET [Suspect]
     Active Substance: PIRFENIDONE
     Route: 048
     Dates: start: 2015, end: 201605
  6. ESBRIET [Suspect]
     Active Substance: PIRFENIDONE
     Dosage: IT WAS STOPPED IN MAY 2016 AND RESTARTED ON 27?NOV?2018
     Route: 048
     Dates: start: 20181127, end: 20181203
  7. METFORMIN [Concomitant]
     Active Substance: METFORMIN HYDROCHLORIDE
  8. CITALOPRAM [Concomitant]
     Active Substance: CITALOPRAM HYDROBROMIDE
     Route: 065
  9. LACTULOSE. [Concomitant]
     Active Substance: LACTULOSE
     Dosage: 10G PER 15 ML.
  10. ESBRIET [Suspect]
     Active Substance: PIRFENIDONE
     Route: 048
     Dates: start: 2015, end: 2015
  11. METOPROLOL. [Concomitant]
     Active Substance: METOPROLOL
     Route: 065
  12. TECTA [Concomitant]
     Active Substance: PANTOPRAZOLE MAGNESIUM
     Route: 065
  13. ADVIL [Concomitant]
     Active Substance: IBUPROFEN
  14. IBUPROFEN. [Concomitant]
     Active Substance: IBUPROFEN
     Dosage: 2 TABLETS/DAY
     Route: 065
  15. ESBRIET [Suspect]
     Active Substance: PIRFENIDONE
     Route: 048
     Dates: start: 201812, end: 202105
  16. VITAMIN D3 [Concomitant]
     Active Substance: CHOLECALCIFEROL
  17. ESBRIET [Suspect]
     Active Substance: PIRFENIDONE
     Route: 048
     Dates: start: 20181204, end: 201812
  18. TAXOL [Suspect]
     Active Substance: PACLITAXEL
     Indication: OVARIAN CANCER
     Route: 065
     Dates: end: 2017
  19. ZOPICLONE [Concomitant]
     Active Substance: ZOPICLONE
     Route: 065
  20. PANTOPRAZOLE [Concomitant]
     Active Substance: PANTOPRAZOLE
     Route: 065
  21. LANTUS [Concomitant]
     Active Substance: INSULIN GLARGINE
     Dosage: 10 UNITS
     Route: 065
  22. HUMULIN R [Concomitant]
     Active Substance: INSULIN HUMAN
     Dosage: 5 UNITS, ?THRICE A DAY WITH MEALS
     Route: 065
  23. JAMIESON B12 [Concomitant]
  24. ESBRIET [Suspect]
     Active Substance: PIRFENIDONE
     Indication: IDIOPATHIC PULMONARY FIBROSIS
     Route: 048
     Dates: start: 20150312, end: 20150318
  25. CYMBALTA [Concomitant]
     Active Substance: DULOXETINE HYDROCHLORIDE
     Route: 065
     Dates: start: 2016
  26. DULOXETINE. [Concomitant]
     Active Substance: DULOXETINE
  27. VITAMIN B6;VITAMIN B12 [Concomitant]
  28. DICLOFENAC [Concomitant]
     Active Substance: DICLOFENAC
     Route: 065
  29. PANTOPRAZOLE [Concomitant]
     Active Substance: PANTOPRAZOLE
     Route: 065
  30. FERROUS [IRON] [Concomitant]
     Active Substance: IRON
     Route: 048
  31. FOLIC ACID. [Concomitant]
     Active Substance: FOLIC ACID
  32. ESBRIET [Suspect]
     Active Substance: PIRFENIDONE
     Route: 048
     Dates: start: 20150319, end: 20150325
  33. ESBRIET [Suspect]
     Active Substance: PIRFENIDONE
     Dosage: UNSURE IF PATIENT WENT UP TO 534 AS ADVISED.
     Route: 048
     Dates: start: 201901, end: 201909
  34. ZOPICLONE [Concomitant]
     Active Substance: ZOPICLONE
     Route: 065
  35. SYNTHROID [Concomitant]
     Active Substance: LEVOTHYROXINE SODIUM
     Route: 065
  36. ONGLYZA [Concomitant]
     Active Substance: SAXAGLIPTIN HYDROCHLORIDE
  37. VITAMIN D1 [Concomitant]
     Active Substance: VITAMIN D NOS

REACTIONS (45)
  - Depression [Not Recovered/Not Resolved]
  - Heart rate increased [Not Recovered/Not Resolved]
  - Pulmonary function test decreased [Not Recovered/Not Resolved]
  - Arthritis [Unknown]
  - Mood swings [Unknown]
  - Bronchiectasis [Unknown]
  - Pelvic mass [Unknown]
  - Fatigue [Unknown]
  - Delusion [Unknown]
  - Tremor [Unknown]
  - Fatigue [Unknown]
  - Pain [Unknown]
  - Arthralgia [Not Recovered/Not Resolved]
  - Pulmonary function test abnormal [Unknown]
  - Drug intolerance [Unknown]
  - Insomnia [Unknown]
  - Hypertension [Not Recovered/Not Resolved]
  - Photosensitivity reaction [Not Recovered/Not Resolved]
  - Hyperacusis [Not Recovered/Not Resolved]
  - Lower respiratory tract infection [Recovered/Resolved]
  - Skin disorder [Unknown]
  - Dyspnoea [Not Recovered/Not Resolved]
  - Migraine [Unknown]
  - Arthritis [Not Recovered/Not Resolved]
  - Chest pain [Not Recovered/Not Resolved]
  - Anxiety [Unknown]
  - Spinal osteoarthritis [Unknown]
  - Myalgia [Not Recovered/Not Resolved]
  - Dry eye [Not Recovered/Not Resolved]
  - Hypertension [Unknown]
  - Infection [Unknown]
  - Muscular weakness [Not Recovered/Not Resolved]
  - Hypersensitivity [Unknown]
  - Skin induration [Unknown]
  - Skin exfoliation [Unknown]
  - Gastric cancer [Not Recovered/Not Resolved]
  - Ovarian cancer [Unknown]
  - Depression [Not Recovered/Not Resolved]
  - Confusional state [Unknown]
  - Lung disorder [Unknown]
  - Productive cough [Not Recovered/Not Resolved]
  - Crepitations [Unknown]
  - Anaemia [Unknown]
  - Asthenia [Not Recovered/Not Resolved]
  - Food allergy [Unknown]

NARRATIVE: CASE EVENT DATE: 201503
